FAERS Safety Report 17102389 (Version 7)
Quarter: 2020Q2

REPORT INFORMATION
  Report Type: Report from Study
  Country: US (occurrence: US)
  Receive Date: 20191202
  Receipt Date: 20200611
  Transmission Date: 20200713
  Serious: No
  Sender: FDA-Public Use
  Company Number: NVSC2019US055400

PATIENT
  Age: 59 Year
  Sex: Female

DRUGS (4)
  1. ENTRESTO [Suspect]
     Active Substance: SACUBITRIL\VALSARTAN
     Dosage: 1 DF (24MG)
     Route: 048
     Dates: start: 202001
  2. ENTRESTO [Suspect]
     Active Substance: SACUBITRIL\VALSARTAN
     Dosage: 1 DF (SACUBITRIL 24MG,VALSARTAN26 MG)
     Route: 048
     Dates: start: 2018
  3. ENTRESTO [Suspect]
     Active Substance: SACUBITRIL\VALSARTAN
     Indication: CARDIAC FAILURE CONGESTIVE
     Dosage: UNK, BID
     Route: 048
  4. ENTRESTO [Suspect]
     Active Substance: SACUBITRIL\VALSARTAN
     Dosage: 1 DF (49 MG OF SACUBITRIL, 51 MG OF VALSARTAN), BID
     Route: 048
     Dates: start: 2018

REACTIONS (10)
  - Stress [Not Recovered/Not Resolved]
  - Fatigue [Not Recovered/Not Resolved]
  - Peripheral swelling [Recovering/Resolving]
  - Eye injury [Recovering/Resolving]
  - Asthenia [Unknown]
  - Dizziness [Unknown]
  - Depressed mood [Recovering/Resolving]
  - Nightmare [Not Recovered/Not Resolved]
  - Gastrooesophageal reflux disease [Unknown]
  - Cardiac function test [Recovering/Resolving]

NARRATIVE: CASE EVENT DATE: 202001
